FAERS Safety Report 23501064 (Version 2)
Quarter: 2024Q1

REPORT INFORMATION
  Report Type: Spontaneous
  Country: US (occurrence: US)
  Receive Date: 20240208
  Receipt Date: 20240214
  Transmission Date: 20240410
  Serious: No
  Sender: FDA-Public Use
  Company Number: US-LEO Pharma-367463

PATIENT
  Age: 63 Year
  Sex: Male

DRUGS (1)
  1. ENSTILAR [Suspect]
     Active Substance: BETAMETHASONE DIPROPIONATE\CALCIPOTRIENE HYDRATE
     Indication: Erythema
     Dosage: PRN FOR REDNESS AND SCALING

REACTIONS (2)
  - Dry skin [Recovering/Resolving]
  - Product prescribing issue [Unknown]
